FAERS Safety Report 8590921 (Version 3)
Quarter: 2012Q4

REPORT INFORMATION
  Report Type: 
  Country: US (occurrence: US)
  Receive Date: 20120601
  Receipt Date: 20121207
  Transmission Date: 20130627
  Serious: Yes (Hospitalization)
  Sender: FDA-Public Use
  Company Number: US-GLAXOSMITHKLINE-A0979564A

PATIENT
  Age: 57 Year
  Sex: Female

DRUGS (2)
  1. FLOLAN [Suspect]
     Indication: PRODUCT USED FOR UNKNOWN INDICATION
     Route: 042
     Dates: start: 20120316, end: 20121130
  2. REVATIO [Concomitant]

REACTIONS (4)
  - Hepatic failure [Not Recovered/Not Resolved]
  - Ascites [Unknown]
  - Fluid overload [Unknown]
  - Fluid retention [Unknown]
